FAERS Safety Report 5745993-5 (Version None)
Quarter: 2008Q2

REPORT INFORMATION
  Report Type: 
  Country: None (occurrence: None)
  Receive Date: 20080520
  Receipt Date: 20080515
  Transmission Date: 20081010
  Serious: Yes (Other)
  Sender: FDA-Public Use
  Company Number: DAV-AE-CLO-07-008

PATIENT
  Sex: Female

DRUGS (6)
  1. CLONIDINE HCL [Suspect]
     Indication: DEPRESSION
     Dosage: 0.1MG - QID - PO
     Route: 048
     Dates: start: 20070807
  2. CLONIDINE HCL [Suspect]
     Indication: POST-TRAUMATIC STRESS DISORDER
     Dosage: 0.1MG - QID - PO
     Route: 048
     Dates: start: 20070807
  3. SERTRALINE [Concomitant]
  4. ALPRAZOLAM [Concomitant]
  5. PREMARIN [Concomitant]
  6. TYLENOL [Concomitant]

REACTIONS (8)
  - ALOPECIA [None]
  - DRUG INEFFECTIVE [None]
  - DYSPNOEA [None]
  - MITRAL VALVE INCOMPETENCE [None]
  - MYOCARDIAL INFARCTION [None]
  - NIGHTMARE [None]
  - PANIC ATTACK [None]
  - PHARMACEUTICAL PRODUCT COMPLAINT [None]
